FAERS Safety Report 24754727 (Version 3)
Quarter: 2025Q1

REPORT INFORMATION
  Report Type: Report from Study
  Country: US (occurrence: US)
  Receive Date: 20241219
  Receipt Date: 20250129
  Transmission Date: 20250409
  Serious: Yes (Hospitalization)
  Sender: TAKEDA
  Company Number: US-TAKEDA-2024TUS124084

PATIENT
  Sex: Female
  Weight: 64.853 kg

DRUGS (3)
  1. IXAZOMIB [Suspect]
     Active Substance: IXAZOMIB
     Indication: Amyloidosis
  2. IXAZOMIB [Suspect]
     Active Substance: IXAZOMIB
     Indication: Plasma cell myeloma
  3. LASIX [Concomitant]
     Active Substance: FUROSEMIDE

REACTIONS (6)
  - Dyspnoea [Unknown]
  - Depressed mood [Unknown]
  - Product blister packaging issue [Unknown]
  - Off label use [Unknown]
  - Product dose omission issue [Unknown]
  - Product packaging quantity issue [Unknown]
